FAERS Safety Report 17713175 (Version 1)
Quarter: 2020Q2

REPORT INFORMATION
  Report Type: Spontaneous
  Country: DE (occurrence: DE)
  Receive Date: 20200427
  Receipt Date: 20200427
  Transmission Date: 20200714
  Serious: Yes (Life-Threatening, Hospitalization, Other)
  Sender: FDA-Public Use
  Company Number: DE-MICRO LABS LIMITED-ML2020-01364

PATIENT
  Age: 45 Year
  Sex: Female
  Weight: 78 kg

DRUGS (16)
  1. MIRENA [Suspect]
     Active Substance: LEVONORGESTREL
     Indication: INTRAUTERINE CONTRACEPTION
     Dates: start: 2000
  2. LEVOTHYROXINE. [Suspect]
     Active Substance: LEVOTHYROXINE
  3. PREDNISOLONE. [Suspect]
     Active Substance: PREDNISOLONE
  4. METOPROLOL - TABLET [Suspect]
     Active Substance: METOPROLOL
     Dosage: UNK (47.5 1-0-0)
  5. EPLERENONE. [Suspect]
     Active Substance: EPLERENONE
     Dosage: 25 MILLIGRAM DAILY
  6. SIMVASTATIN. [Suspect]
     Active Substance: SIMVASTATIN
  7. DEKRISTOL [Suspect]
     Active Substance: CHOLECALCIFEROL
     Dosage: 2000 INTERNATIONAL UNIT
  8. REVINTY ELLIPTA [Suspect]
     Active Substance: FLUTICASONE FUROATE\VILANTEROL TRIFENATATE
     Dosage: 200 UG/25 UG
  9. METHOTREXATE. [Suspect]
     Active Substance: METHOTREXATE
     Dosage: 20 MILLIGRAM, QWK
  10. EVOLOCUMAB [Suspect]
     Active Substance: EVOLOCUMAB
     Dosage: 140 MILLIGRAM, Q2WK
  11. FOLSAN 5 MG TABLETTEN [Suspect]
     Active Substance: FOLIC ACID
     Dosage: 5 MILLIGRAM DAILY
     Route: 048
  12. SALBUTAMOL [Suspect]
     Active Substance: ALBUTEROL
     Dosage: 0.1%
  13. PANTOPRAZOLE [Suspect]
     Active Substance: PANTOPRAZOLE
     Dosage: 40 MILLIGRAM, DAILY
  14. ELIQUIS [Suspect]
     Active Substance: APIXABAN
     Indication: ANTICOAGULANT THERAPY
     Dosage: 5 MILLIGRAM, BID
     Dates: start: 20190612
  15. ENTRESTO [Suspect]
     Active Substance: SACUBITRIL\VALSARTAN
     Dosage: 24 MG/26 MG
  16. KALINOR (POTASSIUM CHLORIDE) [Suspect]
     Active Substance: POTASSIUM CHLORIDE
     Dosage: 1 AGU/ML BID

REACTIONS (2)
  - Subclavian vein thrombosis [Recovered/Resolved]
  - Off label use [Unknown]

NARRATIVE: CASE EVENT DATE: 20190706
